FAERS Safety Report 17471960 (Version 2)
Quarter: 2020Q1

REPORT INFORMATION
  Report Type: Spontaneous
  Country: US (occurrence: US)
  Receive Date: 20200228
  Receipt Date: 20200304
  Transmission Date: 20200409
  Serious: No
  Sender: FDA-Public Use
  Company Number: US-JNJFOC-20200211417

PATIENT
  Sex: Female
  Weight: 58.57 kg

DRUGS (1)
  1. TYLENOL 8HR [Suspect]
     Active Substance: ACETAMINOPHEN
     Indication: PAIN MANAGEMENT
     Dosage: 1 PILL ONCE ADAY
     Route: 048

REACTIONS (5)
  - Inappropriate schedule of product administration [Unknown]
  - Dysgeusia [Not Recovered/Not Resolved]
  - Product taste abnormal [Unknown]
  - Incorrect dose administered [Unknown]
  - Oral discomfort [Recovered/Resolved]
